FAERS Safety Report 25488301 (Version 1)
Quarter: 2025Q2

REPORT INFORMATION
  Report Type: Spontaneous
  Country: KN (occurrence: KN)
  Receive Date: 20250627
  Receipt Date: 20250627
  Transmission Date: 20250717
  Serious: Yes (Hospitalization, Other)
  Sender: AZURITY PHARMACEUTICALS
  Company Number: KN-AZURITY PHARMACEUTICALS, INC.-AZR202506-001708

PATIENT
  Age: 58 Year
  Sex: Male

DRUGS (2)
  1. METHOTREXATE [Suspect]
     Active Substance: METHOTREXATE
     Indication: Philadelphia positive acute lymphocytic leukaemia
     Route: 037
  2. CYTARABINE [Concomitant]
     Active Substance: CYTARABINE
     Indication: Philadelphia positive acute lymphocytic leukaemia
     Route: 037

REACTIONS (3)
  - Neurotoxicity [Not Recovered/Not Resolved]
  - Respiratory failure [Not Recovered/Not Resolved]
  - Leukoencephalopathy [Not Recovered/Not Resolved]
